FAERS Safety Report 7453614-9 (Version None)
Quarter: 2011Q2

REPORT INFORMATION
  Report Type: 
  Country: None (occurrence: None)
  Receive Date: 20110502
  Receipt Date: 20110103
  Transmission Date: 20111010
  Serious: Yes (Other)
  Sender: FDA-Public Use
  Company Number: US-ASTRAZENECA-2011SE00703

PATIENT
  Age: 33 Year
  Sex: Male

DRUGS (1)
  1. NEXIUM [Suspect]
     Route: 048

REACTIONS (4)
  - MALAISE [None]
  - REGURGITATION [None]
  - HAEMATEMESIS [None]
  - DRUG DOSE OMISSION [None]
